FAERS Safety Report 17548517 (Version 1)
Quarter: 2020Q1

REPORT INFORMATION
  Report Type: Spontaneous
  Country: US (occurrence: US)
  Receive Date: 20200317
  Receipt Date: 20200317
  Transmission Date: 20200409
  Serious: No
  Sender: FDA-Public Use
  Company Number: US-TEVA-2020-US-1199820

PATIENT
  Sex: Male
  Weight: 57.2 kg

DRUGS (2)
  1. ADEMPAS [Concomitant]
     Active Substance: RIOCIGUAT
  2. EPOPROSTENOL SODIUM (TEVA) [Suspect]
     Active Substance: EPOPROSTENOL SODIUM
     Dosage: 36 NG PER KG PER MIN
     Dates: start: 20191101

REACTIONS (3)
  - Gastritis [Unknown]
  - Feeding disorder [Unknown]
  - Nausea [Unknown]
